FAERS Safety Report 24347414 (Version 1)
Quarter: 2024Q3

REPORT INFORMATION
  Report Type: Spontaneous
  Country: US (occurrence: US)
  Receive Date: 20240922
  Receipt Date: 20240922
  Transmission Date: 20241017
  Serious: No
  Sender: SANDOZ
  Company Number: US-002147023-NVSC2024US185831

PATIENT
  Sex: Male

DRUGS (1)
  1. TOBREX [Suspect]
     Active Substance: TOBRAMYCIN
     Indication: Product used for unknown indication
     Dosage: 0.3 MG, QD, 4X DAILY
     Route: 065

REACTIONS (1)
  - Vision blurred [Unknown]
